FAERS Safety Report 5335460-5 (Version None)
Quarter: 2007Q2

REPORT INFORMATION
  Report Type: 
  Country: None (occurrence: None)
  Receive Date: 20070525
  Receipt Date: 20070516
  Transmission Date: 20071010
  Serious: Yes (Other)
  Sender: FDA-Public Use
  Company Number: US-PFIZER INC-2007040380

PATIENT
  Sex: Female

DRUGS (3)
  1. LIPITOR [Suspect]
  2. PAXIL [Suspect]
  3. CARBOPLATIN [Suspect]
     Indication: CHEMOTHERAPY

REACTIONS (2)
  - MUSCLE SPASTICITY [None]
  - OEDEMA PERIPHERAL [None]
